FAERS Safety Report 8366235-0 (Version None)
Quarter: 2012Q2

REPORT INFORMATION
  Report Type: 
  Country: None (occurrence: None)
  Receive Date: 20120517
  Receipt Date: 20120514
  Transmission Date: 20120825
  Serious: Yes (Other)
  Sender: FDA-Public Use
  Company Number: PHHO2011TW021885

PATIENT
  Sex: Female
  Weight: 50.8 kg

DRUGS (7)
  1. SILYMARIN [Concomitant]
     Indication: HEPATITIS CHRONIC ACTIVE
     Dosage: 2 DF, TID
     Route: 048
     Dates: start: 20100716, end: 20110316
  2. CLOMIPHENE CITRATE [Concomitant]
     Indication: INFERTILITY
     Dosage: 2 DF, QD
     Route: 048
     Dates: start: 20110422, end: 20110426
  3. CALHO [Concomitant]
     Indication: TETANY
     Dosage: 1 DF, QD
     Route: 048
     Dates: start: 20120318, end: 20120511
  4. CEFADROXIL [Concomitant]
     Indication: BACTERIAL INFECTION
     Dosage: 3 DF, Q12H
     Route: 048
     Dates: start: 20111214, end: 20111215
  5. FERROUS GLUCO-B [Concomitant]
     Indication: IRON DEFICIENCY ANAEMIA
     Dosage: 1 DF, QD
     Route: 048
     Dates: start: 20120318, end: 20120511
  6. DIALICOR [Concomitant]
     Indication: DECREASED APPETITE
     Dosage: 2 DF, TID
     Route: 048
     Dates: start: 20120308, end: 20120405
  7. TELBIVUDINE [Suspect]
     Indication: HEPATITIS B
     Dosage: 1 DF, QD
     Route: 048
     Dates: start: 20101028

REACTIONS (4)
  - MATERNAL EXPOSURE DURING PREGNANCY [None]
  - DELIVERY [None]
  - NORMAL NEWBORN [None]
  - HAEMORRHAGE IN PREGNANCY [None]
